FAERS Safety Report 23596770 (Version 1)
Quarter: 2024Q1

REPORT INFORMATION
  Report Type: Spontaneous
  Country: US (occurrence: US)
  Receive Date: 20240305
  Receipt Date: 20240305
  Transmission Date: 20240410
  Serious: Yes (Death, Other)
  Sender: FDA-Public Use
  Company Number: US-PFIZER INC-202400056484

PATIENT
  Age: 75 Year
  Sex: Male
  Weight: 87.09 kg

DRUGS (8)
  1. VYNDAMAX [Suspect]
     Active Substance: TAFAMIDIS
     Indication: Amyloidosis
     Dosage: UNK
  2. AMIODARONE [Concomitant]
     Active Substance: AMIODARONE
     Indication: Cardiac disorder
     Dosage: 400 MILLIGRAMS, ONCE A DAY
  3. ASPIRIN [Concomitant]
     Active Substance: ASPIRIN
     Dosage: 81 MILLIGRAMS, ONCE A DAY
  4. MEXILETINE [Concomitant]
     Active Substance: MEXILETINE
     Dosage: 150 MILLIGRAMS, THREE TIMES A DAY
  5. TORSEMIDE [Concomitant]
     Active Substance: TORSEMIDE
     Dosage: 100 MILLIGRAMS, TWO TIMES A DAY
  6. WARFARIN [Concomitant]
     Active Substance: WARFARIN
     Dosage: 2 MILLIGRAMS 5 TIMES A WEEK
  7. WARFARIN [Concomitant]
     Active Substance: WARFARIN
     Dosage: 1 MILLIGRAM TWO TIMES A WEEK
  8. INSPRA [Concomitant]
     Active Substance: EPLERENONE
     Dosage: 25 MILLIGRAMS, TWO TIMES A DAY

REACTIONS (1)
  - Cardiac failure congestive [Fatal]
